FAERS Safety Report 5571744-3 (Version None)
Quarter: 2007Q4

REPORT INFORMATION
  Report Type: 
  Country: None (occurrence: None)
  Receive Date: 20071221
  Receipt Date: 20071217
  Transmission Date: 20080405
  Serious: Yes (Other)
  Sender: FDA-Public Use
  Company Number: B0297505A

PATIENT
  Age: 45 Year
  Sex: Female

DRUGS (2)
  1. SEROXAT [Suspect]
     Indication: DRUG USE FOR UNKNOWN INDICATION
     Dosage: 20MG PER DAY
     Route: 048
  2. ST JOHNS WORT [Concomitant]

REACTIONS (17)
  - ADVERSE EVENT [None]
  - ANXIETY [None]
  - ARRHYTHMIA [None]
  - BACK PAIN [None]
  - BIPOLAR I DISORDER [None]
  - FATIGUE [None]
  - HYPERHIDROSIS [None]
  - JOINT STIFFNESS [None]
  - MANIA [None]
  - PALPITATIONS [None]
  - PANIC ATTACK [None]
  - PARAESTHESIA [None]
  - PSYCHOTIC DISORDER [None]
  - RESTLESSNESS [None]
  - SOMNOLENCE [None]
  - SUICIDAL IDEATION [None]
  - SUICIDE ATTEMPT [None]
